FAERS Safety Report 6300031-0 (Version None)
Quarter: 2009Q3

REPORT INFORMATION
  Report Type: 
  Country: None (occurrence: None)
  Receive Date: 20090806
  Receipt Date: 20090731
  Transmission Date: 20100115
  Serious: Yes (Hospitalization)
  Sender: FDA-Public Use
  Company Number: US-ELI_LILLY_AND_COMPANY-US200905003232

PATIENT
  Sex: Female

DRUGS (1)
  1. FORTEO [Suspect]

REACTIONS (5)
  - BLOOD PRESSURE DECREASED [None]
  - BREAST MASS [None]
  - BREAST PAIN [None]
  - HEADACHE [None]
  - PULSE ABSENT [None]
